FAERS Safety Report 8964949 (Version 1)
Quarter: 2012Q4

REPORT INFORMATION
  Report Type: 
  Country: GB (occurrence: GB)
  Receive Date: 20121213
  Receipt Date: 20121213
  Transmission Date: 20130627
  Serious: Yes (Other)
  Sender: FDA-Public Use
  Company Number: GB-WATSON-2012-22081

PATIENT
  Age: 44 Year
  Sex: Female

DRUGS (3)
  1. RISPERIDONE (UNKNOWN) [Suspect]
     Indication: MANIA
     Dosage: 3 mg, daily, Dosage Form: Unspecified, 1 mg and 2 mg
     Route: 048
     Dates: start: 201105, end: 201110
  2. RISPERDAL CONSTA [Suspect]
     Indication: MANIA
     Dosage: 25 mg, once every two weeks
     Route: 030
     Dates: start: 201011, end: 201103
  3. LITHIUM CARBONATE [Concomitant]
     Indication: PRODUCT USED FOR UNKNOWN INDICATION
     Dosage: Dosage Form: Unspecified, 600-800 mg
     Route: 065
     Dates: start: 201011

REACTIONS (4)
  - Blood prolactin increased [Unknown]
  - Galactorrhoea [Unknown]
  - Breast engorgement [Unknown]
  - Malaise [Unknown]
